FAERS Safety Report 21841211 (Version 1)
Quarter: 2023Q1

REPORT INFORMATION
  Report Type: Spontaneous
  Country: DE (occurrence: DE)
  Receive Date: 20230110
  Receipt Date: 20230110
  Transmission Date: 20230418
  Serious: Yes (Other)
  Sender: FDA-Public Use
  Company Number: DE-SUN PHARMACEUTICAL INDUSTRIES LTD-2020R1-262082

PATIENT
  Age: 48 Year
  Sex: Female

DRUGS (1)
  1. QUETIAPINE [Suspect]
     Active Substance: QUETIAPINE
     Indication: Product used for unknown indication
     Dosage: 18.2 GRAM
     Route: 048

REACTIONS (3)
  - Toxicity to various agents [Unknown]
  - Suicide attempt [Unknown]
  - Coma [Unknown]
